FAERS Safety Report 7972702 (Version 2)
Quarter: 2014Q1

REPORT INFORMATION
  Report Type: Spontaneous
  Country: US (occurrence: US)
  Receive Date: 20110603
  Receipt Date: 20140121
  Transmission Date: 20141002
  Serious: Yes (Other)
  Sender: FDA-Public Use
  Company Number: US-BAYER-2010-001753

PATIENT
  Age: 32 Year
  Sex: Female

DRUGS (6)
  1. YAZ [Suspect]
     Indication: PRODUCT USED FOR UNKNOWN INDICATION
     Dosage: UNK
  2. YASMIN [Suspect]
     Indication: PRODUCT USED FOR UNKNOWN INDICATION
     Dosage: UNK
  3. ATACAND [CANDESARTAN CILEXETIL] [Concomitant]
     Dosage: 32 MG, UNK
     Route: 048
  4. NAPROXEN [Concomitant]
     Dosage: 500 MG, UNK
     Route: 048
     Dates: start: 20070924
  5. HYDROCODONE/ACETAMINOPHEN [Concomitant]
     Dosage: 5/500 MG, UNK
     Route: 048
     Dates: start: 20070926, end: 20071112
  6. PROTONIX [Concomitant]
     Dosage: 40 MG, UNK
     Route: 048
     Dates: start: 20070926

REACTIONS (4)
  - Gallbladder disorder [None]
  - Pain [None]
  - Cholecystitis chronic [None]
  - Biliary dyskinesia [None]
